FAERS Safety Report 12517287 (Version 2)
Quarter: 2016Q3

REPORT INFORMATION
  Report Type: Spontaneous
  Country: US (occurrence: US)
  Receive Date: 20160630
  Receipt Date: 20160705
  Transmission Date: 20161109
  Serious: Yes (Disabling, Other)
  Sender: FDA-Public Use
  Company Number: US-PFIZER INC-2016186382

PATIENT
  Age: 63 Year
  Sex: Male
  Weight: 81 kg

DRUGS (2)
  1. BUPIVACAINE HCL [Suspect]
     Active Substance: BUPIVACAINE HYDROCHLORIDE
     Indication: GENERAL ANAESTHESIA
     Dosage: 266 MG TO A TOTAL VOLUME OF 40 ML WITH NORMAL SALINE
     Route: 058
  2. SODIUM CHLORIDE. [Concomitant]
     Active Substance: SODIUM CHLORIDE
     Indication: GENERAL ANAESTHESIA

REACTIONS (1)
  - Femoral nerve palsy [Recovered/Resolved]
